FAERS Safety Report 9280765 (Version 1)
Quarter: 2013Q2

REPORT INFORMATION
  Report Type: Spontaneous
  Country: US (occurrence: US)
  Receive Date: 20130509
  Receipt Date: 20130509
  Transmission Date: 20140414
  Serious: No
  Sender: FDA-Public Use
  Company Number: US-PFIZER INC-2013140760

PATIENT
  Age: 53 Year
  Sex: Male
  Weight: 113 kg

DRUGS (3)
  1. LEVOXYL [Suspect]
     Indication: THYROID DISORDER
     Dosage: 1 DF, 1X/DAY
     Route: 048
  2. LEVOXYL [Suspect]
     Dosage: 325 UG, 1X/DAY (BY TAKING TWO 150UG TABLETS + ONE 25UG TABLET ONCE A DAY)
     Route: 048
  3. EFFEXOR [Concomitant]
     Dosage: UNK

REACTIONS (1)
  - Weight decreased [Unknown]
